FAERS Safety Report 13646612 (Version 1)
Quarter: 2017Q2

REPORT INFORMATION
  Report Type: Spontaneous
  Country: US (occurrence: US)
  Receive Date: 20170613
  Receipt Date: 20170613
  Transmission Date: 20170830
  Serious: Yes (Other)
  Sender: FDA-Public Use
  Company Number: US-PFIZER INC-2017253595

PATIENT
  Sex: Female

DRUGS (1)
  1. LYRICA [Suspect]
     Active Substance: PREGABALIN
     Indication: MUSCLE CONTRACTIONS INVOLUNTARY
     Dosage: 75 MG, 2X/DAY

REACTIONS (2)
  - Eye haemorrhage [Unknown]
  - Drug ineffective for unapproved indication [Unknown]
